FAERS Safety Report 12722258 (Version 1)
Quarter: 2016Q3

REPORT INFORMATION
  Report Type: Spontaneous
  Country: US (occurrence: US)
  Receive Date: 20160907
  Receipt Date: 20160907
  Transmission Date: 20161109
  Serious: Yes (Other)
  Sender: FDA-Public Use
  Company Number: US-PFIZER INC-2016413481

PATIENT
  Age: 49 Year
  Sex: Male
  Weight: 88.45 kg

DRUGS (1)
  1. PREPARATION H NOS [Suspect]
     Active Substance: COCOA BUTTER\PETROLATUM\PHENYLEPHRINE HYDROCHLORIDE\PHENYLEPHRINE HYDROCHLORIDE OR MINERAL OIL
     Indication: PAIN
     Dosage: 0.5GRAM-1 GRAM EVERY TIME AFTER USE RESTROOM AND SOMETIMES IN BETWEEN RECTALLY

REACTIONS (3)
  - Intentional product misuse [Unknown]
  - Rectal haemorrhage [Not Recovered/Not Resolved]
  - Anal fissure [Not Recovered/Not Resolved]

NARRATIVE: CASE EVENT DATE: 201608
